FAERS Safety Report 23129058 (Version 2)
Quarter: 2024Q1

REPORT INFORMATION
  Report Type: Report from Study
  Country: US (occurrence: US)
  Receive Date: 20231031
  Receipt Date: 20240109
  Transmission Date: 20240410
  Serious: Yes (Other)
  Sender: FDA-Public Use
  Company Number: US-ABBVIE-5459839

PATIENT
  Sex: Female
  Weight: 54 kg

DRUGS (1)
  1. CREON [Suspect]
     Active Substance: PANCRELIPASE AMYLASE\PANCRELIPASE LIPASE\PANCRELIPASE PROTEASE
     Indication: Product used for unknown indication
     Dosage: FORM STRENGTH: 36000 UNIT,?FREQUENCY TEXT:  2 CAPSULES 3 TIMES A DAY WITH MEAL
     Route: 048

REACTIONS (4)
  - Nephropathy toxic [Unknown]
  - Urinary tract infection [Unknown]
  - Feeling abnormal [Unknown]
  - General symptom [Unknown]

NARRATIVE: CASE EVENT DATE: 20230101
